FAERS Safety Report 17839047 (Version 1)
Quarter: 2020Q2

REPORT INFORMATION
  Report Type: Spontaneous
  Country: US (occurrence: US)
  Receive Date: 20200529
  Receipt Date: 20200529
  Transmission Date: 20200714
  Serious: Yes (Life-Threatening, Hospitalization, Other)
  Sender: FDA-Public Use
  Company Number: US-EMCURE PHARMACEUTICALS LTD-2020-EPL-000644

PATIENT
  Age: 20 Year
  Sex: Female

DRUGS (4)
  1. DEFEROXAMINE [Suspect]
     Active Substance: DEFEROXAMINE MESYLATE
     Indication: IRON OVERLOAD
     Dosage: 72-HOUR INTRAVENOUS INFUSIONS OF DFO EVERY 4 TO 6 WEEKS
     Route: 042
  2. DEFEROXAMINE [Suspect]
     Active Substance: DEFEROXAMINE MESYLATE
     Dosage: DAILY, 10-HOUR SQ INFUSIONS OF DFO DAILY
     Route: 058
  3. LISINOPRIL. [Suspect]
     Active Substance: LISINOPRIL
     Indication: PRODUCT USED FOR UNKNOWN INDICATION
     Dosage: UNK
  4. DEFERASIROX. [Concomitant]
     Active Substance: DEFERASIROX
     Indication: IRON OVERLOAD
     Dosage: DAILY
     Route: 048

REACTIONS (4)
  - Vomiting [Recovered/Resolved]
  - Anaphylactic reaction [Recovered/Resolved]
  - Injection site rash [Recovered/Resolved]
  - Angioedema [Recovered/Resolved]
